FAERS Safety Report 7381261-6 (Version None)
Quarter: 2011Q1

REPORT INFORMATION
  Report Type: 
  Country: None (occurrence: None)
  Receive Date: 20110321
  Receipt Date: 20110310
  Transmission Date: 20110831
  Serious: Yes (Hospitalization, Disabling)
  Sender: FDA-Public Use
  Company Number: 2010SP034933

PATIENT
  Age: 25 Year
  Sex: Female
  Weight: 117.028 kg

DRUGS (2)
  1. KEPPRA [Suspect]
     Indication: CONVULSION
     Dosage: 1500 MG;Q12H
     Dates: start: 20080601
  2. NUVARING [Suspect]
     Indication: CONTRACEPTION
     Dates: start: 20060401, end: 20080618

REACTIONS (7)
  - SUPERIOR SAGITTAL SINUS THROMBOSIS [None]
  - ANXIETY [None]
  - MOOD ALTERED [None]
  - CEREBROVASCULAR ACCIDENT [None]
  - SUBARACHNOID HAEMORRHAGE [None]
  - GRAND MAL CONVULSION [None]
  - DEPRESSION [None]
